FAERS Safety Report 15428482 (Version 4)
Quarter: 2018Q4

REPORT INFORMATION
  Report Type: Spontaneous
  Country: US (occurrence: US)
  Receive Date: 20180926
  Receipt Date: 20181120
  Transmission Date: 20190204
  Serious: Yes (Life-Threatening, Hospitalization, Other)
  Sender: FDA-Public Use
  Company Number: US-AUROBINDO-AUR-APL-2018-047214

PATIENT
  Age: 8 Year
  Sex: Female

DRUGS (2)
  1. TRIMETHOPRIM+SULFAMETHOXAZOLE [Suspect]
     Active Substance: SULFAMETHOXAZOLE\TRIMETHOPRIM
     Indication: PROPHYLAXIS URINARY TRACT INFECTION
     Dosage: 100 MILLIGRAM, DAILY
     Route: 065
  2. TRIMETHOPRIM+SULFAMETHOXAZOLE [Suspect]
     Active Substance: SULFAMETHOXAZOLE\TRIMETHOPRIM
     Indication: VESICOURETERIC REFLUX
     Dosage: 4 MILLIGRAM/KILOGRAM
     Route: 065

REACTIONS (12)
  - Pruritus [Unknown]
  - Lymphadenopathy [Unknown]
  - Lipase increased [Unknown]
  - Rash macular [Unknown]
  - Pyrexia [Unknown]
  - Swelling face [Unknown]
  - Liver function test increased [Recovering/Resolving]
  - Anaemia [Unknown]
  - Hypersomnia [Recovered/Resolved]
  - Incorrect dose administered [Unknown]
  - Drug reaction with eosinophilia and systemic symptoms [Recovered/Resolved]
  - Rash papular [Unknown]
